FAERS Safety Report 24133341 (Version 1)
Quarter: 2024Q3

REPORT INFORMATION
  Report Type: Report from Study
  Country: US (occurrence: US)
  Receive Date: 20240724
  Receipt Date: 20240724
  Transmission Date: 20241016
  Serious: Yes (Other)
  Sender: GILEAD
  Company Number: US-GILEAD-2024-0680776

PATIENT
  Sex: Female

DRUGS (2)
  1. AMBRISENTAN [Suspect]
     Active Substance: AMBRISENTAN
     Indication: Pulmonary arterial hypertension
     Dosage: 5 MG, QD
     Route: 065
     Dates: start: 20220323
  2. WARFARIN [Concomitant]
     Active Substance: WARFARIN

REACTIONS (1)
  - Dialysis [Unknown]
